FAERS Safety Report 10287496 (Version 2)
Quarter: 2014Q3

REPORT INFORMATION
  Report Type: Spontaneous
  Country: US (occurrence: US)
  Receive Date: 20140709
  Receipt Date: 20140709
  Transmission Date: 20150326
  Serious: Yes (Death, Hospitalization)
  Sender: FDA-Public Use
  Company Number: US-GLAXOSMITHKLINE-B0717826A

PATIENT
  Sex: Male

DRUGS (1)
  1. AVANDIA [Suspect]
     Active Substance: ROSIGLITAZONE MALEATE
     Indication: DIABETES MELLITUS
     Dosage: 4MG UNKNOWN
     Route: 048
     Dates: start: 200305, end: 20070111

REACTIONS (5)
  - Arrhythmia [Fatal]
  - Atrial fibrillation [Unknown]
  - Myocardial infarction [Unknown]
  - Sudden cardiac death [Fatal]
  - Cardiac arrest [Unknown]
